FAERS Safety Report 11438321 (Version 1)
Quarter: 2015Q3

REPORT INFORMATION
  Report Type: Spontaneous
  Country: US (occurrence: US)
  Receive Date: 20150901
  Receipt Date: 20150901
  Transmission Date: 20151125
  Serious: No
  Sender: FDA-Public Use
  Company Number: US-ROCHE-1140939

PATIENT
  Age: 62 Year
  Sex: Male

DRUGS (5)
  1. RIBAVIRIN. [Suspect]
     Active Substance: RIBAVIRIN
     Indication: HEPATITIS C
     Route: 065
     Dates: start: 20120713
  2. RIBAVIRIN. [Suspect]
     Active Substance: RIBAVIRIN
     Route: 065
  3. RIBAVIRIN. [Suspect]
     Active Substance: RIBAVIRIN
     Route: 065
  4. PEGASYS [Suspect]
     Active Substance: PEGINTERFERON ALFA-2A
     Route: 065
  5. PEGASYS [Suspect]
     Active Substance: PEGINTERFERON ALFA-2A
     Indication: HEPATITIS C
     Route: 065
     Dates: start: 20120713

REACTIONS (18)
  - Malaise [Recovering/Resolving]
  - Lung infection [Recovering/Resolving]
  - Paraesthesia [Unknown]
  - Asthenia [Recovering/Resolving]
  - Hyperhidrosis [Unknown]
  - Joint range of motion decreased [Unknown]
  - Confusional state [Unknown]
  - Cough [Unknown]
  - Weight decreased [Unknown]
  - Musculoskeletal pain [Unknown]
  - Skin mass [Unknown]
  - Pruritus [Unknown]
  - Decreased appetite [Unknown]
  - Intervertebral disc disorder [Unknown]
  - Urticaria [Unknown]
  - Anaemia [Unknown]
  - Arthropathy [Unknown]
  - Pruritus generalised [Unknown]

NARRATIVE: CASE EVENT DATE: 20121214
